FAERS Safety Report 7712852-8 (Version None)
Quarter: 2011Q3

REPORT INFORMATION
  Report Type: 
  Country: None (occurrence: None)
  Receive Date: 20110826
  Receipt Date: 20110822
  Transmission Date: 20111222
  Serious: Yes (Death, Hospitalization)
  Sender: FDA-Public Use
  Company Number: PHEH2011US01575

PATIENT
  Sex: Male
  Weight: 88 kg

DRUGS (7)
  1. VIDAZA [Concomitant]
     Dosage: UNK UKN, UNK
     Route: 065
  2. GEMFIBROZIL [Concomitant]
     Indication: BLOOD CHOLESTEROL INCREASED
     Dosage: 600 MG, BID
     Route: 048
  3. ASPIRIN [Concomitant]
     Indication: CORONARY ARTERY DISEASE
     Dosage: 81 MG, QD
     Route: 048
  4. SIMAVASTATIN [Concomitant]
     Indication: HYPERTENSION
     Dosage: 20 MG, QHS
     Route: 048
  5. EXJADE [Suspect]
     Indication: SERUM FERRITIN INCREASED
     Dosage: 1750 MG, QD
     Route: 048
  6. GLIPIZIDE [Concomitant]
     Indication: DIABETES MELLITUS
     Dosage: 5 MG, QD
     Route: 048
  7. PLAVIX [Concomitant]
     Indication: CORONARY ARTERY DISEASE
     Dosage: 75 MG, QD
     Route: 048

REACTIONS (3)
  - SINUSITIS [None]
  - PYREXIA [None]
  - DEATH [None]
